FAERS Safety Report 8555151-7 (Version None)
Quarter: 2012Q3

REPORT INFORMATION
  Report Type: 
  Country: None (occurrence: None)
  Receive Date: 20120731
  Receipt Date: 20120730
  Transmission Date: 20120928
  Serious: Yes (Congenital Anomaly)
  Sender: FDA-Public Use
  Company Number: US-GILEAD-2012-0058037

PATIENT
  Sex: Male

DRUGS (5)
  1. RITONAVIR [Suspect]
     Indication: HIV INFECTION
     Dosage: 100 MG, QD
     Route: 064
  2. ZIDOVUDINE [Suspect]
     Dosage: UNK
  3. REYATAZ [Suspect]
     Indication: HIV INFECTION
     Dosage: 300 MG, QD
     Route: 064
  4. ZIDOVUDINE [Suspect]
     Indication: HIV INFECTION
     Dosage: UNK
     Route: 064
     Dates: start: 20111013, end: 20111013
  5. EMTRICITABINE/TENOFOVIR DISOPROXIL FUMARATE [Suspect]
     Indication: HIV INFECTION
     Dosage: 1 DF, QD
     Route: 064

REACTIONS (2)
  - CONGENITAL HYDRONEPHROSIS [None]
  - URETHRAL VALVES [None]
